FAERS Safety Report 6143309-6 (Version None)
Quarter: 2009Q2

REPORT INFORMATION
  Report Type: 
  Country: None (occurrence: None)
  Receive Date: 20090403
  Receipt Date: 20090327
  Transmission Date: 20091009
  Serious: Yes (Hospitalization)
  Sender: FDA-Public Use
  Company Number: B0535955A

PATIENT
  Sex: Female
  Weight: 71 kg

DRUGS (5)
  1. SERETIDE [Suspect]
     Indication: CHRONIC OBSTRUCTIVE PULMONARY DISEASE
     Dosage: 2PUFF TWICE PER DAY
     Route: 055
     Dates: start: 20030101
  2. VENTOLIN [Suspect]
     Indication: CHRONIC OBSTRUCTIVE PULMONARY DISEASE
     Dosage: 100MCG AS REQUIRED
     Route: 055
     Dates: start: 20020523
  3. LANSOPRAZOLE [Suspect]
     Indication: DRUG USE FOR UNKNOWN INDICATION
     Dosage: 30MG PER DAY
     Route: 048
  4. SENOKOT [Suspect]
     Indication: CONSTIPATION
     Route: 065
  5. MANEVAC [Suspect]
     Indication: CONSTIPATION
     Route: 065

REACTIONS (21)
  - ABDOMINAL DISTENSION [None]
  - BRONCHIECTASIS [None]
  - CHEST DISCOMFORT [None]
  - CHEST PAIN [None]
  - CHEST X-RAY ABNORMAL [None]
  - CONSTIPATION [None]
  - COUGH [None]
  - DIZZINESS [None]
  - DYSPHONIA [None]
  - DYSPNOEA [None]
  - FEMORAL HERNIA [None]
  - INCREASED UPPER AIRWAY SECRETION [None]
  - INTESTINAL RESECTION [None]
  - LARYNGITIS [None]
  - LOWER RESPIRATORY TRACT INFECTION [None]
  - LUNG DISORDER [None]
  - PAIN [None]
  - PLEURISY [None]
  - SPUTUM RETENTION [None]
  - THYROID NEOPLASM [None]
  - UMBILICAL HERNIA [None]
